FAERS Safety Report 15893013 (Version 1)
Quarter: 2019Q1

REPORT INFORMATION
  Report Type: Report from Study
  Country: US (occurrence: US)
  Receive Date: 20190130
  Receipt Date: 20190130
  Transmission Date: 20190417
  Serious: No
  Sender: FDA-Public Use
  Company Number: US-EXELIXIS-CABO-18015657

PATIENT
  Sex: Male

DRUGS (2)
  1. CABOMETYX [Suspect]
     Active Substance: CABOZANTINIB S-MALATE
     Indication: BONE CANCER
     Dosage: 60 MG, (6 DAYS PER WEEK, SKIPPING THURSDAY)
     Route: 048
     Dates: start: 20180403
  2. CABOMETYX [Suspect]
     Active Substance: CABOZANTINIB S-MALATE
     Dosage: 40 MG, (MONDAY, WEDNESDAY, FRIDAY, AND  SUNDAY ONLY)
     Route: 048
     Dates: start: 20180826

REACTIONS (2)
  - Off label use [Unknown]
  - Jaundice [Unknown]

NARRATIVE: CASE EVENT DATE: 2018
